FAERS Safety Report 13517014 (Version 1)
Quarter: 2017Q2

REPORT INFORMATION
  Report Type: Spontaneous
  Country: US (occurrence: US)
  Receive Date: 20170504
  Receipt Date: 20170504
  Transmission Date: 20170830
  Serious: No
  Sender: FDA-Public Use
  Company Number: None

PATIENT
  Age: 72 Year
  Sex: Female

DRUGS (1)
  1. STELARA [Suspect]
     Active Substance: USTEKINUMAB
     Indication: MALAISE
     Dosage: 90MG EVERY 12 WEEKS SQ
     Route: 058
     Dates: start: 20170427, end: 20170504

REACTIONS (2)
  - Rash generalised [None]
  - Therapy cessation [None]

NARRATIVE: CASE EVENT DATE: 20170427
